FAERS Safety Report 9150827 (Version 1)
Quarter: 2013Q1

REPORT INFORMATION
  Report Type: Spontaneous
  Country: US (occurrence: None)
  Receive Date: 20130214
  Receipt Date: 20130214
  Transmission Date: 20140127
  Serious: Yes (Hospitalization)
  Sender: FDA-Public Use
  Company Number: USA/USA/13/0027942

PATIENT
  Age: 49 Year
  Sex: Male
  Weight: 62.7 kg

DRUGS (1)
  1. LEVETIRACETAM (LEVETIRACETAM) [Suspect]
     Indication: PRODUCT USED FOR UNKNOWN INDICATION

REACTIONS (5)
  - Intentional overdose [None]
  - Suicide attempt [None]
  - Alcohol use [None]
  - Anxiety [None]
  - Drug withdrawal syndrome [None]
